FAERS Safety Report 10146364 (Version 2)
Quarter: 2014Q2

REPORT INFORMATION
  Report Type: Spontaneous
  Country: BR (occurrence: BR)
  Receive Date: 20140501
  Receipt Date: 20140501
  Transmission Date: 20141212
  Serious: Yes (Hospitalization)
  Sender: FDA-Public Use
  Company Number: BR-DSJP-DSJ-2014-04437

PATIENT
  Sex: 0

DRUGS (8)
  1. OLMESARTAN MEDOXOMIL [Suspect]
     Indication: HYPERTENSION
     Dosage: 40 MG, QD
     Route: 048
  2. PRASUGREL HYDROCHLORIDE [Suspect]
     Indication: ANTIPLATELET THERAPY
     Dosage: 10MG/DAY
     Route: 048
  3. LEVOTHYROXINE SODIUM [Concomitant]
     Dosage: UNK
     Route: 065
  4. EZETIMIBE W/SIMVASTATIN [Concomitant]
     Dosage: UNK
     Route: 065
  5. FOLIC ACID [Concomitant]
     Dosage: UNK
     Route: 065
  6. PANTOPRAZOLE [Concomitant]
     Dosage: UNK
     Route: 065
  7. SENNA/CASSIA FISTULA/TAMARINDUS INDICA/CORIANDRUM SATIVUM/GLYCYRRHIZA [Concomitant]
     Dosage: UNK
     Route: 065
  8. BUCLIZINE [Concomitant]
     Dosage: UNK
     Route: 065

REACTIONS (6)
  - Urinary tract infection [Not Recovered/Not Resolved]
  - Pneumonia [Unknown]
  - Chest pain [Unknown]
  - Urinary retention [Unknown]
  - Fatigue [Unknown]
  - Abdominal distension [Unknown]
